FAERS Safety Report 19956971 (Version 1)
Quarter: 2021Q4

REPORT INFORMATION
  Report Type: Spontaneous
  Country: CN (occurrence: CN)
  Receive Date: 20211014
  Receipt Date: 20211014
  Transmission Date: 20220303
  Serious: Yes (Other)
  Sender: FDA-Public Use
  Company Number: CN-BAXTER-2021BAX024946

PATIENT
  Age: 60 Year
  Sex: Male
  Weight: 65 kg

DRUGS (8)
  1. CYCLOPHOSPHAMIDE [Suspect]
     Active Substance: CYCLOPHOSPHAMIDE
     Indication: Follicular lymphoma
     Dosage: CYCLOPHOSPHAMIDE FOR INJECTION 1.2 G + 0.9% NS 500 ML IVGTT D1
     Route: 041
     Dates: start: 20190227, end: 20190227
  2. SODIUM CHLORIDE [Suspect]
     Active Substance: SODIUM CHLORIDE
     Indication: Medication dilution
     Dosage: CYCLOPHOSPHAMIDE FOR INJECTION 1.2 G + 0.9% NS 500 ML IVGTT D1
     Route: 041
     Dates: start: 20190227, end: 20190227
  3. SODIUM CHLORIDE [Suspect]
     Active Substance: SODIUM CHLORIDE
     Dosage: VINDESINE FOR INJECTION 4 MG + 0.9% NS 20 ML D1
     Route: 040
     Dates: start: 20190227, end: 20190227
  4. SODIUM CHLORIDE [Suspect]
     Active Substance: SODIUM CHLORIDE
     Dosage: ETOPOSIDE INJECTION 150 MG + 0.9% NS 250 ML D1-3
     Route: 041
     Dates: start: 20190227, end: 20190301
  5. VINDESINE SULFATE [Suspect]
     Active Substance: VINDESINE SULFATE
     Indication: Follicular lymphoma
     Dosage: VINDESINE FOR INJECTION 4 MG + 0.9% NS 20 ML D1
     Route: 040
     Dates: start: 20190227, end: 20190227
  6. ETOPOSIDE [Suspect]
     Active Substance: ETOPOSIDE
     Indication: Follicular lymphoma
     Dosage: ETOPOSIDE INJECTION 150 MG + 0.9% NS 250 ML D1-3
     Route: 041
     Dates: start: 20190227, end: 20190301
  7. GLUTATHIONE [Concomitant]
     Active Substance: GLUTATHIONE
     Indication: Prophylaxis
     Route: 065
     Dates: start: 20190227
  8. PHOSPHOLIPID [Concomitant]
     Active Substance: PHOSPHOLIPID
     Indication: Enzyme level increased
     Route: 065
     Dates: start: 20190227

REACTIONS (1)
  - Drug-induced liver injury [Unknown]

NARRATIVE: CASE EVENT DATE: 20190305
